FAERS Safety Report 8098690-8 (Version None)
Quarter: 2012Q1

REPORT INFORMATION
  Report Type: 
  Country: None (occurrence: None)
  Receive Date: 20120129
  Receipt Date: 20110913
  Transmission Date: 20120608
  Serious: Yes (Other)
  Sender: FDA-Public Use
  Company Number: US-ABBOTT-11P-163-0854798-00

PATIENT
  Age: 40 Year
  Sex: Female

DRUGS (4)
  1. HUMIRA [Suspect]
     Dates: start: 20110101, end: 20110101
  2. HUMIRA [Suspect]
     Dates: start: 20110101, end: 20110101
  3. HUMIRA [Suspect]
     Indication: CROHN'S DISEASE
     Dates: start: 20110101, end: 20110101
  4. MERCAPTOPURINE [Concomitant]
     Indication: CROHN'S DISEASE
     Dates: start: 20100101, end: 20110101

REACTIONS (4)
  - HAEMANGIOMA OF LIVER [None]
  - METASTASES TO LUNG [None]
  - VASCULAR NEOPLASM [None]
  - ANGIOSARCOMA [None]
